FAERS Safety Report 8198976-2 (Version None)
Quarter: 2012Q1

REPORT INFORMATION
  Report Type: 
  Country: None (occurrence: None)
  Receive Date: 20120309
  Receipt Date: 20120301
  Transmission Date: 20120608
  Serious: Yes (Hospitalization, Other)
  Sender: FDA-Public Use
  Company Number: US-BAYER-2011-076221

PATIENT
  Sex: Female
  Weight: 64 kg

DRUGS (4)
  1. YAZ [Suspect]
     Indication: MENSTRUAL DISORDER
  2. YAZ [Suspect]
     Indication: CONTRACEPTION
     Dosage: UNK
     Dates: start: 20090501, end: 20090601
  3. ZITHROMAX [Concomitant]
     Dosage: UNK
     Dates: start: 20090601
  4. YAZ [Suspect]
     Indication: PREMENSTRUAL SYNDROME

REACTIONS (8)
  - EMOTIONAL DISTRESS [None]
  - PSYCHOLOGICAL TRAUMA [None]
  - INJURY [None]
  - PAIN [None]
  - CHOLECYSTITIS [None]
  - GALLBLADDER DISORDER [None]
  - ANXIETY [None]
  - FEAR OF DISEASE [None]
